FAERS Safety Report 25455366 (Version 1)
Quarter: 2025Q2

REPORT INFORMATION
  Report Type: Spontaneous
  Country: US (occurrence: None)
  Receive Date: 20250619
  Receipt Date: 20250619
  Transmission Date: 20250717
  Serious: No
  Sender: US WORLDMEDS
  Company Number: US-USWM, LLC-UWM202505-000071

PATIENT
  Sex: Female

DRUGS (1)
  1. LUCEMYRA [Suspect]
     Active Substance: LOFEXIDINE
     Indication: Product used for unknown indication

REACTIONS (4)
  - Illness [Unknown]
  - Disease recurrence [Unknown]
  - Insurance issue [Unknown]
  - Product use issue [Unknown]
